FAERS Safety Report 6671447-8 (Version None)
Quarter: 2010Q2

REPORT INFORMATION
  Report Type: 
  Country: None (occurrence: None)
  Receive Date: 20100406
  Receipt Date: 20100406
  Transmission Date: 20101027
  Serious: Yes (Other)
  Sender: FDA-Public Use
  Company Number: None

PATIENT
  Age: 48 Year
  Sex: Female
  Weight: 104.3273 kg

DRUGS (1)
  1. FLAGYL [Suspect]
     Dosage: 1-3X DAY FOR 10 DAYS 3X
     Dates: start: 20100303

REACTIONS (3)
  - ANXIETY [None]
  - CONVULSION [None]
  - HEART RATE INCREASED [None]
